FAERS Safety Report 4551006-3 (Version None)
Quarter: 2005Q1

REPORT INFORMATION
  Report Type: 
  Country: None (occurrence: None)
  Receive Date: 20050113
  Receipt Date: 20040318
  Transmission Date: 20050727
  Serious: No
  Sender: FDA-Public Use
  Company Number: US-BRISTOL-MYERS SQUIBB COMPANY-12537395

PATIENT
  Age: 35 Year
  Sex: Female

DRUGS (2)
  1. CARDIOLITE [Suspect]
     Dosage: STRESS DOSE: 14, REST DOSE: 42 MCI.
     Dates: start: 20040318, end: 20040318
  2. ESTRACE [Concomitant]

REACTIONS (4)
  - ABNORMAL CHEST SOUND [None]
  - FEELING ABNORMAL [None]
  - PYREXIA [None]
  - RESPIRATORY TRACT CONGESTION [None]
